FAERS Safety Report 9483825 (Version 2)
Quarter: 2013Q3

REPORT INFORMATION
  Report Type: Spontaneous
  Country: CA (occurrence: CA)
  Receive Date: 20130828
  Receipt Date: 20130828
  Transmission Date: 20140515
  Serious: Yes (Hospitalization)
  Sender: FDA-Public Use
  Company Number: CA-AMGEN-KDL322826

PATIENT
  Age: 66 Year
  Sex: Female
  Weight: 64.5 kg

DRUGS (3)
  1. ENBREL [Suspect]
     Indication: RHEUMATOID ARTHRITIS
     Dosage: UNK UNK, QWK
     Route: 065
     Dates: start: 20030320
  2. METHOTREXATE [Concomitant]
     Dosage: UNK UNK, UNK
     Route: 048
  3. FOLINIC ACID [Concomitant]
     Dosage: UNK UNK, UNK

REACTIONS (4)
  - Colon neoplasm [Recovered/Resolved]
  - Aphonia [Unknown]
  - Nasopharyngitis [Unknown]
  - Eye infection [Unknown]
